FAERS Safety Report 4264951-3 (Version None)
Quarter: 2004Q1

REPORT INFORMATION
  Report Type: 
  Country: None (occurrence: None)
  Receive Date: 20040106
  Receipt Date: 20031209
  Transmission Date: 20041129
  Serious: Yes (Other)
  Sender: FDA-Public Use
  Company Number: 200310810BCA

PATIENT
  Sex: Female

DRUGS (4)
  1. PLASBUMIN-25 [Suspect]
     Dosage: ONCE, INTRAVENOUS
     Route: 042
     Dates: start: 19860318
  2. PLASBUMIN-25 [Suspect]
     Dosage: ONCE, INTRAVENOUS
     Route: 042
     Dates: start: 19860319
  3. PLASBUMIN-25 [Suspect]
     Dosage: INTRAVENOUS
     Route: 042
     Dates: start: 19860319, end: 19860323
  4. PLASBUMIN-25 [Suspect]
     Dosage: ONCE, INTRAVENOUS
     Route: 042
     Dates: start: 19860324

REACTIONS (1)
  - HEPATITIS C POSITIVE [None]
